FAERS Safety Report 6177853-2 (Version None)
Quarter: 2009Q2

REPORT INFORMATION
  Report Type: 
  Country: None (occurrence: None)
  Receive Date: 20090501
  Receipt Date: 20090501
  Transmission Date: 20091009
  Serious: Yes (Death)
  Sender: FDA-Public Use
  Company Number: None

PATIENT
  Sex: Male

DRUGS (10)
  1. REVLIMID [Suspect]
     Indication: MULTIPLE MYELOMA
     Dosage: 5MG DAILY ORAL
     Route: 048
     Dates: start: 20090408, end: 20090411
  2. FLUOXETINE HCL [Concomitant]
  3. ASPIRIN [Concomitant]
  4. RANITIDINE [Concomitant]
  5. DIGOXIN [Concomitant]
  6. DOCUSATE [Concomitant]
  7. FENTANYL [Concomitant]
  8. ALKERAN [Concomitant]
  9. MEGESTROL ACETATE [Concomitant]
  10. NASAREL [Concomitant]

REACTIONS (2)
  - DISEASE PROGRESSION [None]
  - LEUKOPENIA [None]
